FAERS Safety Report 10233337 (Version 3)
Quarter: 2014Q3

REPORT INFORMATION
  Report Type: Spontaneous
  Country: US (occurrence: US)
  Receive Date: 20140612
  Receipt Date: 20140711
  Transmission Date: 20150326
  Serious: Yes (Hospitalization)
  Sender: FDA-Public Use
  Company Number: US-US-EMD SERONO, INC.-7056049

PATIENT
  Sex: Female
  Weight: 88 kg

DRUGS (1)
  1. REBIF [Suspect]
     Active Substance: INTERFERON BETA-1A
     Indication: MULTIPLE SCLEROSIS
     Route: 058
     Dates: start: 20031109

REACTIONS (7)
  - Multiple sclerosis relapse [Not Recovered/Not Resolved]
  - Hypoaesthesia [Unknown]
  - Spinal column stenosis [Recovered/Resolved]
  - Intervertebral disc protrusion [Recovered/Resolved]
  - Osteoarthritis [Unknown]
  - Osteoporosis [Unknown]
  - Exostosis [Recovered/Resolved]

NARRATIVE: CASE EVENT DATE: 2010
